FAERS Safety Report 8997991 (Version 1)
Quarter: 2013Q1

REPORT INFORMATION
  Report Type: Spontaneous
  Country: GB (occurrence: GB)
  Receive Date: 20130104
  Receipt Date: 20130104
  Transmission Date: 20140127
  Serious: Yes (Other)
  Sender: FDA-Public Use
  Company Number: PHHY2012GB122059

PATIENT
  Age: 34 Year
  Sex: Female
  Weight: 100 kg

DRUGS (20)
  1. PREDNISOLONE ACETATE SANDOZ [Suspect]
     Indication: HIDRADENITIS
     Dosage: 20 MG
     Route: 048
     Dates: start: 20120722
  2. BISOPROLOL [Suspect]
     Indication: SINUS TACHYCARDIA
     Dosage: 10 MG
     Route: 048
     Dates: start: 20120718
  3. BISOPROLOL [Suspect]
     Dosage: 2.5 MG
     Route: 048
  4. BISOPROLOL [Suspect]
     Dosage: 5 MG
     Route: 048
  5. BISOPROLOL [Suspect]
     Dosage: 10 MG
     Route: 048
  6. FENTANYL [Concomitant]
  7. MORPHINE SULPHATE [Concomitant]
  8. NAPROXEN SODIUM [Concomitant]
  9. OMEPRAZOLE [Concomitant]
  10. FLUOXETINE HYDROCHLORIDE [Concomitant]
  11. NORTRIPTYLINE HYDROCHLORIDE [Concomitant]
  12. LOESTRIN [Concomitant]
  13. BUCCASTEM [Concomitant]
  14. DOMPERIDONE [Concomitant]
  15. CETIRIZINE [Concomitant]
  16. DALACIN C [Concomitant]
  17. HIBISCRUB [Concomitant]
  18. MEFIX [Concomitant]
  19. VENTOLINE [Concomitant]
  20. AQUACEL AG [Concomitant]

REACTIONS (1)
  - Bradycardia [Recovered/Resolved]
